FAERS Safety Report 10364591 (Version 2)
Quarter: 2014Q3

REPORT INFORMATION
  Report Type: Spontaneous
  Country: JP (occurrence: JP)
  Receive Date: 20140806
  Receipt Date: 20140806
  Transmission Date: 20150326
  Serious: Yes (Hospitalization)
  Sender: FDA-Public Use
  Company Number: JP-MUNDIPHARMA DS AND PHARMACOVIGILANCE-GBR-2014-0019797

PATIENT
  Age: 77 Year
  Sex: Female

DRUGS (10)
  1. KAKKON-TO [Concomitant]
     Active Substance: HERBS\ROOTS
  2. MUCOSTA [Concomitant]
     Active Substance: REBAMIPIDE
  3. BLOPRESS [Concomitant]
     Active Substance: CANDESARTAN CILEXETIL
  4. TAKEPRON [Concomitant]
     Active Substance: LANSOPRAZOLE
  5. URITOS [Concomitant]
     Active Substance: IMIDAFENACIN
  6. BETANIS [Concomitant]
     Active Substance: MIRABEGRON
  7. WARFARIN [Concomitant]
     Active Substance: WARFARIN
  8. NORSPAN [Suspect]
     Active Substance: BUPRENORPHINE
     Indication: BACK PAIN
     Dosage: 5 MCG, Q1H
     Route: 062
     Dates: start: 20140714, end: 20140721
  9. LASIX [Concomitant]
     Active Substance: FUROSEMIDE
  10. BAYASPIRIN [Concomitant]
     Active Substance: ASPIRIN

REACTIONS (5)
  - Dysarthria [Unknown]
  - Pyrexia [Unknown]
  - Dizziness [Recovering/Resolving]
  - Feeling abnormal [Recovering/Resolving]
  - Cardiac disorder [Unknown]

NARRATIVE: CASE EVENT DATE: 20140721
